FAERS Safety Report 14101625 (Version 2)
Quarter: 2017Q4

REPORT INFORMATION
  Report Type: Spontaneous
  Country: NO (occurrence: NO)
  Receive Date: 20171018
  Receipt Date: 20171121
  Transmission Date: 20180321
  Serious: Yes (Hospitalization, Other)
  Sender: FDA-Public Use
  Company Number: NO-SHIRE-NO201725606

PATIENT

DRUGS (1)
  1. REVESTIVE [Suspect]
     Active Substance: TEDUGLUTIDE
     Indication: SHORT-BOWEL SYNDROME
     Dosage: 0.4 ML, 1X/DAY:QD
     Route: 058
     Dates: start: 20150610, end: 20161114

REACTIONS (5)
  - Device related infection [Unknown]
  - Intestinal obstruction [Recovered/Resolved with Sequelae]
  - Diarrhoea [Unknown]
  - Infrequent bowel movements [Unknown]
  - Abdominal pain [Unknown]

NARRATIVE: CASE EVENT DATE: 20161110
